FAERS Safety Report 20169269 (Version 1)
Quarter: 2021Q4

REPORT INFORMATION
  Report Type: Spontaneous
  Country: NL (occurrence: NL)
  Receive Date: 20211210
  Receipt Date: 20211210
  Transmission Date: 20220303
  Serious: Yes (Other)
  Sender: FDA-Public Use
  Company Number: None

PATIENT
  Age: 64 Year
  Sex: Female
  Weight: 65 kg

DRUGS (7)
  1. HERCEPTIN [Suspect]
     Active Substance: TRASTUZUMAB
     Indication: HER2 positive breast cancer
     Dosage: 1 PER 3 WEEKS INFUSION
     Route: 041
     Dates: start: 20201028
  2. VAXZEVRIA [Suspect]
     Active Substance: AZD-1222
     Indication: COVID-19 immunisation
     Route: 065
     Dates: start: 20211031
  3. CLONAZEPAM [Concomitant]
     Active Substance: CLONAZEPAM
     Dosage: TABLET 0.5 MG (MILLIGRAM)
     Route: 065
  4. OXAZEPAM [Concomitant]
     Active Substance: OXAZEPAM
     Dosage: TABLET 10 MG (MILLIGRAM)
  5. ASPIRIN [Concomitant]
     Active Substance: ASPIRIN
     Dosage: TABLET 80 MG (MILLIGRAM)
  6. LEVOTHYROXINE [Concomitant]
     Active Substance: LEVOTHYROXINE
     Dosage: TABLET 100 (MICROGRAM)
  7. OMEPRAZOLE [Concomitant]
     Active Substance: OMEPRAZOLE
     Dosage: 40MG

REACTIONS (10)
  - Headache [Recovering/Resolving]
  - Palpitations [Not Recovered/Not Resolved]
  - Malaise [Recovering/Resolving]
  - Drug interaction [Unknown]
  - Nausea [Recovered/Resolved]
  - Myalgia [Not Recovered/Not Resolved]
  - Arrhythmia [Not Recovered/Not Resolved]
  - Injection site pain [Recovered/Resolved]
  - Fatigue [Not Recovered/Not Resolved]
  - Arthralgia [Not Recovered/Not Resolved]

NARRATIVE: CASE EVENT DATE: 20211031
